FAERS Safety Report 14141766 (Version 7)
Quarter: 2018Q2

REPORT INFORMATION
  Report Type: Report from Study
  Country: US (occurrence: US)
  Receive Date: 20171030
  Receipt Date: 20180525
  Transmission Date: 20180711
  Serious: Yes (Other)
  Sender: FDA-Public Use
  Company Number: US-AMGEN-USASL2017161601

PATIENT
  Age: 69 Year
  Sex: Male

DRUGS (3)
  1. REPATHA [Suspect]
     Active Substance: EVOLOCUMAB
     Indication: BLOOD CHOLESTEROL INCREASED
     Dosage: 140 MG, QMO
     Route: 065
  2. REPATHA [Suspect]
     Active Substance: EVOLOCUMAB
     Indication: HYPERCHOLESTEROLAEMIA
     Dosage: 420 MG, QMO
     Route: 065
  3. REPATHA [Suspect]
     Active Substance: EVOLOCUMAB
     Indication: HYPERLIPIDAEMIA
     Dosage: 140 MG, Q2WK
     Route: 065
     Dates: start: 2017

REACTIONS (14)
  - Pruritus [Recovered/Resolved]
  - Rash erythematous [Unknown]
  - Intentional product misuse [Unknown]
  - Dry skin [Recovered/Resolved]
  - Rash pruritic [Unknown]
  - Memory impairment [Unknown]
  - Aphasia [Unknown]
  - Skin exfoliation [Recovered/Resolved]
  - Vision blurred [Recovered/Resolved]
  - Exfoliative rash [Unknown]
  - Low density lipoprotein decreased [Recovering/Resolving]
  - Depression [Recovered/Resolved]
  - Dyspnoea [Unknown]
  - Nasopharyngitis [Recovered/Resolved]

NARRATIVE: CASE EVENT DATE: 201710
